FAERS Safety Report 25018276 (Version 1)
Quarter: 2025Q1

REPORT INFORMATION
  Report Type: Spontaneous
  Country: GB (occurrence: GB)
  Receive Date: 20250227
  Receipt Date: 20250227
  Transmission Date: 20250409
  Serious: Yes (Other)
  Sender: PFIZER
  Company Number: GB-PFIZER INC-PV202500023753

PATIENT
  Sex: Female

DRUGS (2)
  1. FLUCONAZOLE [Interacting]
     Active Substance: FLUCONAZOLE
  2. IVABRADINE [Interacting]
     Active Substance: IVABRADINE
     Indication: Postural orthostatic tachycardia syndrome

REACTIONS (3)
  - Drug interaction [Unknown]
  - Blindness [Unknown]
  - Dizziness [Unknown]
